FAERS Safety Report 17098236 (Version 1)
Quarter: 2019Q4

REPORT INFORMATION
  Report Type: Spontaneous
  Country: US (occurrence: US)
  Receive Date: 20191105
  Receipt Date: 20191105
  Transmission Date: 20200122
  Serious: Yes (Hospitalization)
  Sender: FDA-Public Use
  Company Number: None

PATIENT
  Age: 48 Year
  Sex: Male

DRUGS (7)
  1. ANTIBIOTIC [Concomitant]
     Active Substance: UNSPECIFIED INGREDIENT
  2. TOBRAMYCIN. [Concomitant]
     Active Substance: TOBRAMYCIN
  3. DUBESONIVE [Concomitant]
  4. MULTIPLE VIT [Concomitant]
  5. GATIFLOXACIN. [Concomitant]
     Active Substance: GATIFLOXACIN
  6. HUMIRA [Suspect]
     Active Substance: ADALIMUMAB
     Indication: PSORIATIC ARTHROPATHY
     Dosage: ?          OTHER DOSE:40/0.4 MG/ML;?
     Route: 058
     Dates: start: 20191014
  7. PREDNISOLONE. [Concomitant]
     Active Substance: PREDNISOLONE

REACTIONS (4)
  - Cataract operation [None]
  - Pharyngeal disorder [None]
  - Nasal septum deviation [None]
  - Tonsillar disorder [None]

NARRATIVE: CASE EVENT DATE: 20191104
